FAERS Safety Report 6802007-3 (Version None)
Quarter: 2010Q2

REPORT INFORMATION
  Report Type: 
  Country: None (occurrence: None)
  Receive Date: 20100629
  Receipt Date: 20070615
  Transmission Date: 20101027
  Serious: No
  Sender: FDA-Public Use
  Company Number: US-PFIZER INC-ENC200700085

PATIENT
  Age: 47 Year
  Sex: Female
  Weight: 102.95 kg

DRUGS (24)
  1. ARGATROBAN [Suspect]
     Indication: HEPARIN-INDUCED THROMBOCYTOPENIA
     Dosage: 0.75 MCG/KG/MIN,FREQUENCY:  UNK
     Route: 042
     Dates: start: 20070614, end: 20070615
  2. CYCLOBENZAPRINE [Concomitant]
  3. DIGOXIN [Concomitant]
  4. FAMOTIDINE [Concomitant]
  5. FERROUS SULFATE TAB [Concomitant]
  6. FLUTICASONE PROPIONATE, SALMETEROL XINAFOATE [Concomitant]
  7. FOLIC ACID [Concomitant]
  8. FUROSEMIDE [Concomitant]
  9. LEVOTHYROXINE SODIUM [Concomitant]
  10. MAGNESIUM OXIDE [Concomitant]
  11. METOPROLOL [Concomitant]
  12. MONTELUKAST [Concomitant]
  13. POTASSIUM CHLORIDE [Concomitant]
  14. SERTRALINE HCL [Concomitant]
  15. MULTI-VITAMIN [Concomitant]
  16. ACETAMINOPHEN [Concomitant]
  17. IPRATROPIUM BROMIDE, SALBUTAMOL SULFATE [Concomitant]
  18. DEXTROPROPOXYPHENE NAPSILATE, PARACETAMOL [Concomitant]
  19. HYDROCODONE BITARTRATE + ACETAMINOPHEN [Concomitant]
  20. MECLOZINE [Concomitant]
  21. MORPHINE [Concomitant]
  22. GLYCERYL TRINITRATE [Concomitant]
  23. PROMETHAZINE [Concomitant]
  24. SODIUM CHLORIDE [Concomitant]

REACTIONS (1)
  - INTERNATIONAL NORMALISED RATIO INCREASED [None]
